FAERS Safety Report 16784607 (Version 1)
Quarter: 2019Q3

REPORT INFORMATION
  Report Type: Report from Study
  Country: US (occurrence: US)
  Receive Date: 20190909
  Receipt Date: 20190909
  Transmission Date: 20191005
  Serious: Yes (Death, Other)
  Sender: FDA-Public Use
  Company Number: US-BRISTOL-MYERS SQUIBB COMPANY-BMS-2019-087551

PATIENT
  Age: 61 Year
  Sex: Female
  Weight: 36 kg

DRUGS (3)
  1. PACLITAXEL. [Suspect]
     Active Substance: PACLITAXEL
     Indication: OESOPHAGEAL CARCINOMA
     Dosage: 63 MILLIGRAM, QWK
     Route: 042
     Dates: start: 20190709, end: 20190814
  2. CARBOPLATIN. [Suspect]
     Active Substance: CARBOPLATIN
     Indication: OESOPHAGEAL CARCINOMA
     Dosage: 145 MILLIGRAM, QWK
     Route: 042
     Dates: start: 20190709, end: 20190814
  3. NIVOLUMAB [Suspect]
     Active Substance: NIVOLUMAB
     Indication: OESOPHAGEAL CARCINOMA
     Dosage: 240 MILLIGRAM
     Route: 065
     Dates: start: 20190612, end: 20190807

REACTIONS (1)
  - Death [Fatal]

NARRATIVE: CASE EVENT DATE: 20190905
